FAERS Safety Report 17439283 (Version 1)
Quarter: 2020Q1

REPORT INFORMATION
  Report Type: Other
  Country: FR (occurrence: FR)
  Receive Date: 20200220
  Receipt Date: 20200220
  Transmission Date: 20200409
  Serious: Yes (Hospitalization)
  Sender: FDA-Public Use
  Company Number: FR-CELLTRION INC.-2020FR019201

PATIENT

DRUGS (1)
  1. HERZUMA [Suspect]
     Active Substance: TRASTUZUMAB-PKRB
     Indication: BREAST CANCER METASTATIC
     Dosage: 420 MG, 1 TOTAL
     Route: 042
     Dates: start: 20200115, end: 20200115

REACTIONS (6)
  - Product use issue [Unknown]
  - Infusion related reaction [Recovered/Resolved]
  - Chills [Recovered/Resolved]
  - Accelerated hypertension [Recovered/Resolved]
  - Heart rate increased [Recovered/Resolved]
  - Hyperthermia [Recovered/Resolved]

NARRATIVE: CASE EVENT DATE: 20200115
